FAERS Safety Report 8539219-7 (Version None)
Quarter: 2012Q3

REPORT INFORMATION
  Report Type: 
  Country: None (occurrence: None)
  Receive Date: 20120726
  Receipt Date: 20120717
  Transmission Date: 20120928
  Serious: Yes (Other)
  Sender: FDA-Public Use
  Company Number: DE-PFIZER INC-2012177204

PATIENT

DRUGS (1)
  1. ZOLOFT [Suspect]
     Dosage: UNK
     Dates: start: 20120701, end: 20120722

REACTIONS (5)
  - DYSPNOEA [None]
  - DIZZINESS [None]
  - DEPENDENT PERSONALITY DISORDER [None]
  - HEADACHE [None]
  - PARALYSIS [None]
